FAERS Safety Report 9399103 (Version 1)
Quarter: 2013Q3

REPORT INFORMATION
  Report Type: Spontaneous
  Country: CA (occurrence: CA)
  Receive Date: 20130715
  Receipt Date: 20130715
  Transmission Date: 20140515
  Serious: Yes (Other)
  Sender: FDA-Public Use
  Company Number: CA-ROCHE-1248345

PATIENT
  Age: 10 Year
  Sex: Male
  Weight: 32 kg

DRUGS (6)
  1. CEFTRIAXONE [Suspect]
     Indication: PRODUCT USED FOR UNKNOWN INDICATION
     Dosage: 100 MG/ML, POWDER FOR SOLUTION INTRAMUSCULAR
     Route: 042
  2. CEPHALEXIN [Concomitant]
     Route: 048
  3. FLUTICASONE [Concomitant]
     Route: 055
  4. HEPARIN SODIUM [Concomitant]
     Dosage: SOLUTION INTRAVENOUS
     Route: 042
  5. SALBUTAMOL [Concomitant]
     Route: 055
  6. SODIUM CHLORIDE [Concomitant]
     Route: 042

REACTIONS (3)
  - Abdominal pain [Recovered/Resolved]
  - Hot flush [Recovered/Resolved]
  - Nausea [Recovered/Resolved]
